FAERS Safety Report 18492273 (Version 4)
Quarter: 2022Q2

REPORT INFORMATION
  Report Type: Spontaneous
  Country: US (occurrence: US)
  Receive Date: 20201111
  Receipt Date: 20220429
  Transmission Date: 20220721
  Serious: No
  Sender: FDA-Public Use
  Company Number: US-PFIZER INC-2020443510

PATIENT
  Age: 78 Year
  Sex: Female

DRUGS (1)
  1. LIPITOR [Suspect]
     Active Substance: ATORVASTATIN CALCIUM
     Indication: Hypertension
     Dosage: 40 MG, DAILY
     Route: 048

REACTIONS (3)
  - Off label use [Unknown]
  - Dizziness [Unknown]
  - Confusional state [Unknown]
